FAERS Safety Report 16278306 (Version 1)
Quarter: 2019Q2

REPORT INFORMATION
  Report Type: Spontaneous
  Country: FR (occurrence: FR)
  Receive Date: 20190506
  Receipt Date: 20190506
  Transmission Date: 20190711
  Serious: Yes (Other)
  Sender: FDA-Public Use
  Company Number: FR-BRISTOL-MYERS SQUIBB COMPANY-BMS-2019-040560

PATIENT
  Age: 10 Year
  Sex: Male

DRUGS (1)
  1. ORENCIA [Suspect]
     Active Substance: ABATACEPT
     Indication: CTLA4 DEFICIENCY
     Dosage: 20 MILLIGRAM/KILOGRAM, Q2WK
     Route: 041
     Dates: start: 20180606

REACTIONS (2)
  - Product use in unapproved indication [Unknown]
  - Aphthous ulcer [Not Recovered/Not Resolved]
